FAERS Safety Report 11924486 (Version 4)
Quarter: 2016Q2

REPORT INFORMATION
  Report Type: Report from Study
  Country: US (occurrence: US)
  Receive Date: 20160118
  Receipt Date: 20160622
  Transmission Date: 20160815
  Serious: Yes (Death, Hospitalization, Other)
  Sender: FDA-Public Use
  Company Number: US-ACTELION-A-US2015-128129

PATIENT
  Age: 72 Year
  Sex: Female

DRUGS (2)
  1. RIOCIGUAT [Suspect]
     Active Substance: RIOCIGUAT
     Indication: PRODUCT USED FOR UNKNOWN INDICATION
     Dosage: UNK
     Route: 065
     Dates: start: 201601, end: 201601
  2. OPSUMIT [Suspect]
     Active Substance: MACITENTAN
     Indication: PULMONARY ARTERIAL HYPERTENSION
     Dosage: 10 MG, QD
     Route: 048
     Dates: start: 20150609

REACTIONS (7)
  - Pulmonary fibrosis [Fatal]
  - Dyspnoea [Unknown]
  - Gastrointestinal haemorrhage [Unknown]
  - Epistaxis [Not Recovered/Not Resolved]
  - General physical health deterioration [Unknown]
  - Oedema peripheral [Unknown]
  - Drug dose omission [Unknown]
